FAERS Safety Report 21400455 (Version 1)
Quarter: 2022Q4

REPORT INFORMATION
  Report Type: Report from Study
  Country: US (occurrence: US)
  Receive Date: 20221003
  Receipt Date: 20221003
  Transmission Date: 20230112
  Serious: Yes (Other)
  Sender: FDA-Public Use
  Company Number: US-ABBVIE-4134980

PATIENT
  Age: 54 Year
  Sex: Female

DRUGS (4)
  1. HUMIRA [Suspect]
     Active Substance: ADALIMUMAB
     Indication: Rheumatoid arthritis
     Route: 058
     Dates: start: 202209
  2. MODERNA COVID-19 VACCINE [Concomitant]
     Active Substance: ELASOMERAN
     Indication: COVID-19 immunisation
     Dosage: DOSE1?ONE IN ONCE
     Route: 030
     Dates: start: 20210304
  3. MODERNA COVID-19 VACCINE [Concomitant]
     Active Substance: ELASOMERAN
     Indication: COVID-19 immunisation
     Dosage: DOSE2?ONE IN ONCE
     Route: 030
     Dates: start: 20210401
  4. MODERNA COVID-19 VACCINE [Concomitant]
     Active Substance: ELASOMERAN
     Indication: COVID-19 immunisation
     Dosage: DOSE3?BOOSTER DOSE?ONE IN ONCE
     Route: 030
     Dates: start: 20211111

REACTIONS (1)
  - Nerve injury [Recovering/Resolving]

NARRATIVE: CASE EVENT DATE: 20220901
